FAERS Safety Report 23070722 (Version 1)
Quarter: 2023Q4

REPORT INFORMATION
  Report Type: Spontaneous
  Country: US (occurrence: US)
  Receive Date: 20231016
  Receipt Date: 20231016
  Transmission Date: 20240110
  Serious: No
  Sender: FDA-Public Use
  Company Number: US-VIIV HEALTHCARE LIMITED-US2023138402

PATIENT
  Age: 36 Year

DRUGS (2)
  1. RILPIVIRINE [Suspect]
     Active Substance: RILPIVIRINE
     Indication: HIV infection
     Dosage: UNK, CABENUVA SINGLE-DOSE VIAL OF 600 MG/900 MG KIT
     Route: 065
     Dates: start: 20230801
  2. CABOTEGRAVIR [Suspect]
     Active Substance: CABOTEGRAVIR
     Indication: HIV infection
     Dosage: UNK, CABENUVA SINGLE-DOSE VIAL OF 600 MG/900 MG KIT
     Route: 065
     Dates: start: 20230801

REACTIONS (1)
  - Inappropriate schedule of product administration [Unknown]
